FAERS Safety Report 5573362-X (Version None)
Quarter: 2007Q4

REPORT INFORMATION
  Report Type: 
  Country: None (occurrence: None)
  Receive Date: 20071220
  Receipt Date: 20071220
  Transmission Date: 20080405
  Serious: No
  Sender: FDA-Public Use
  Company Number: None

PATIENT
  Sex: Female
  Weight: 39.4629 kg

DRUGS (2)
  1. PLAQUENIL [Suspect]
     Indication: RHEUMATOID ARTHRITIS
     Dosage: TWICE A DAY
  2. ENBREL [Concomitant]

REACTIONS (2)
  - DYSPHAGIA [None]
  - PHARMACEUTICAL PRODUCT COMPLAINT [None]
